FAERS Safety Report 5745586-X (Version None)
Quarter: 2008Q2

REPORT INFORMATION
  Report Type: 
  Country: None (occurrence: None)
  Receive Date: 20080521
  Receipt Date: 20080509
  Transmission Date: 20081010
  Serious: Yes (Other)
  Sender: FDA-Public Use
  Company Number: JP-PFIZER INC-2008040765

PATIENT
  Age: 48 Year
  Sex: Female

DRUGS (2)
  1. REVATIO [Suspect]
     Indication: PULMONARY ARTERIAL HYPERTENSION
     Dosage: DAILY DOSE:60MG
     Dates: start: 20080419, end: 20080502
  2. WARFARIN SODIUM [Concomitant]

REACTIONS (1)
  - MENORRHAGIA [None]
